FAERS Safety Report 18564049 (Version 1)
Quarter: 2020Q4

REPORT INFORMATION
  Report Type: Spontaneous
  Country: US (occurrence: US)
  Receive Date: 20201130
  Receipt Date: 20201130
  Transmission Date: 20210114
  Serious: Yes (Hospitalization)
  Sender: FDA-Public Use
  Company Number: None

PATIENT
  Age: 68 Year
  Sex: Male
  Weight: 77.1 kg

DRUGS (1)
  1. CAPECITABINE. [Suspect]
     Active Substance: CAPECITABINE
     Indication: RECTAL CANCER
     Dosage: OTHER FREQUENCY:BID CYCLE 14/21D;?
     Route: 048
     Dates: start: 20200916, end: 20201104

REACTIONS (3)
  - Diarrhoea [None]
  - Mucosal inflammation [None]
  - Toxicity to various agents [None]

NARRATIVE: CASE EVENT DATE: 20201108
